FAERS Safety Report 4618272-7 (Version None)
Quarter: 2005Q1

REPORT INFORMATION
  Report Type: 
  Country: None (occurrence: None)
  Receive Date: 20050324
  Receipt Date: 20050307
  Transmission Date: 20050727
  Serious: Yes (Death, Life-Threatening, Hospitalization, Disabling, Other)
  Sender: FDA-Public Use
  Company Number: EWC050242655

PATIENT
  Age: 71 Year
  Sex: Female

DRUGS (5)
  1. FORTEO [Suspect]
     Indication: OSTEOPOROSIS
     Dosage: 20 UG/1 DAY
     Dates: start: 20040922
  2. WARFARIN SODIUM [Concomitant]
  3. LASIX [Concomitant]
  4. LEVAXIN (LEVOTHYROXINE SODIUM) [Concomitant]
  5. CAL-D-VITA [Concomitant]

REACTIONS (2)
  - BRONCHITIS [None]
  - RESPIRATORY FAILURE [None]
